FAERS Safety Report 7360060-5 (Version None)
Quarter: 2011Q1

REPORT INFORMATION
  Report Type: 
  Country: None (occurrence: None)
  Receive Date: 20110317
  Receipt Date: 20110304
  Transmission Date: 20110831
  Serious: Yes (Hospitalization, Other)
  Sender: FDA-Public Use
  Company Number: GB-MYLANLABS-2011S1004363

PATIENT
  Age: 49 Year
  Sex: Male

DRUGS (1)
  1. TERBINAFINE HYDROCHLORIDE [Suspect]
     Indication: NAIL INFECTION
     Route: 048
     Dates: start: 20101230, end: 20100219

REACTIONS (1)
  - CHOLESTASIS [None]
